FAERS Safety Report 7329728-0 (Version None)
Quarter: 2011Q1

REPORT INFORMATION
  Report Type: 
  Country: None (occurrence: None)
  Receive Date: 20110223
  Receipt Date: 20110210
  Transmission Date: 20110831
  Serious: Yes (Death, Hospitalization)
  Sender: FDA-Public Use
  Company Number: 2007-02162

PATIENT
  Age: 50 Year
  Sex: Male
  Weight: 55 kg

DRUGS (13)
  1. IMMUNE GLOBULIN INTRAVENOUS (HUMAN) [Concomitant]
  2. VELCADE [Suspect]
     Indication: MULTIPLE MYELOMA
     Dosage: 2.00 MG, INTRAVENOUS, 1.60 MG, INTRAVENOUS,  INTRAVENOUS
     Route: 042
     Dates: start: 20070522, end: 20070724
  3. VELCADE [Suspect]
     Indication: MULTIPLE MYELOMA
     Dosage: 2.00 MG, INTRAVENOUS, 1.60 MG, INTRAVENOUS,  INTRAVENOUS
     Route: 042
     Dates: start: 20080107, end: 20080314
  4. VELCADE [Suspect]
     Indication: MULTIPLE MYELOMA
     Dosage: 2.00 MG, INTRAVENOUS, 1.60 MG, INTRAVENOUS,  INTRAVENOUS
     Route: 042
     Dates: start: 20070501, end: 20070508
  5. PERINDOPRIL ERBUMINE [Concomitant]
  6. DIFLUCAN [Concomitant]
  7. COTRIM [Concomitant]
  8. PLATELETS, CONCENTRATED (PLATELETS, CONCENTRATED) [Concomitant]
  9. VALIXA (VALGANCICLOVIR HIDROCHLORIDE [Concomitant]
  10. PREDNISOLONE [Concomitant]
  11. AMLODIPINE BESYLATE [Concomitant]
  12. PREDONINE-1 (PREDNISOLONE ACETATE) [Concomitant]
  13. NEORAL [Concomitant]

REACTIONS (10)
  - NEUTROPHIL COUNT DECREASED [None]
  - DISEASE PROGRESSION [None]
  - SKIN DISORDER [None]
  - NEOPLASM MALIGNANT [None]
  - MULTIPLE MYELOMA [None]
  - HYPONATRAEMIA [None]
  - PLATELET COUNT DECREASED [None]
  - GRAFT VERSUS HOST DISEASE [None]
  - HYPOAESTHESIA [None]
  - BLISTER [None]
